FAERS Safety Report 12549366 (Version 1)
Quarter: 2016Q3

REPORT INFORMATION
  Report Type: Spontaneous
  Country: BR (occurrence: BR)
  Receive Date: 20160712
  Receipt Date: 20160712
  Transmission Date: 20161109
  Serious: Yes (Other)
  Sender: FDA-Public Use
  Company Number: BR-BAYER-2016-135348

PATIENT
  Sex: Female

DRUGS (1)
  1. MAGNEVISTAN [Suspect]
     Active Substance: GADOPENTETATE DIMEGLUMINE
     Indication: NUCLEAR MAGNETIC RESONANCE IMAGING BRAIN
     Dosage: 17 ML, ONCE
     Route: 042
     Dates: start: 20160705, end: 20160705

REACTIONS (3)
  - Infusion site thrombosis [None]
  - Infusion site oedema [None]
  - Infusion site pain [None]

NARRATIVE: CASE EVENT DATE: 20160706
